FAERS Safety Report 5238714-6 (Version None)
Quarter: 2007Q1

REPORT INFORMATION
  Report Type: 
  Country: None (occurrence: None)
  Receive Date: 20070215
  Receipt Date: 20070212
  Transmission Date: 20070707
  Serious: Yes (Hospitalization)
  Sender: FDA-Public Use
  Company Number: DE-ROXANE LABORATORIES, INC-2007-BP-02084RO

PATIENT
  Age: 51 Year
  Sex: Female

DRUGS (2)
  1. LITHIUM CARBONATE [Suspect]
     Indication: AFFECTIVE DISORDER
  2. LEVOTHYROXINE SODIUM [Concomitant]
     Indication: HYPOTHYROIDISM

REACTIONS (11)
  - BLOOD CREATININE INCREASED [None]
  - CYSTIC FIBROSIS [None]
  - HYPOTHYROIDISM [None]
  - NEPHROGENIC DIABETES INSIPIDUS [None]
  - NEPHROPATHY [None]
  - NOCTURIA [None]
  - OEDEMA PERIPHERAL [None]
  - POLYDIPSIA [None]
  - POLYURIA [None]
  - RENAL CYST [None]
  - RENAL FAILURE [None]
